FAERS Safety Report 16149571 (Version 1)
Quarter: 2019Q2

REPORT INFORMATION
  Report Type: Spontaneous
  Country: FR (occurrence: FR)
  Receive Date: 20190402
  Receipt Date: 20190402
  Transmission Date: 20190711
  Serious: Yes (Hospitalization)
  Sender: FDA-Public Use
  Company Number: FR-TEVA-2019-FR-1031361

PATIENT
  Age: 85 Year
  Sex: Female
  Weight: 98 kg

DRUGS (15)
  1. TEMESTA (LORAZEPAM) [Suspect]
     Active Substance: LORAZEPAM
     Dosage: 1 MILLIGRAM DAILY;
     Route: 048
     Dates: end: 20070201
  2. NEURONTIN [Suspect]
     Active Substance: GABAPENTIN
     Route: 048
  3. NAFTILUX [Concomitant]
     Active Substance: NAFRONYL OXALATE
     Dosage: 400 MILLIGRAM DAILY;
     Route: 048
     Dates: end: 20070201
  4. NOVONORM [Concomitant]
     Active Substance: REPAGLINIDE
     Dosage: 1 MILLIGRAM DAILY;
     Route: 048
  5. FORTZAAR [Suspect]
     Active Substance: HYDROCHLOROTHIAZIDE\LOSARTAN POTASSIUM
     Indication: ESSENTIAL HYPERTENSION
     Dosage: 1 DOSAGE FORMS DAILY;
     Route: 048
  6. CODOLIPRANE [Suspect]
     Active Substance: ACETAMINOPHEN\CODEINE PHOSPHATE
     Route: 048
     Dates: start: 20070126, end: 20070201
  7. MOXONIDINE [Concomitant]
     Active Substance: MOXONIDINE
     Dosage: .2 MILLIGRAM DAILY;
     Route: 048
     Dates: end: 20070201
  8. LOXEN [Concomitant]
     Dosage: 50 MILLIGRAM DAILY;
     Route: 048
     Dates: end: 20070201
  9. UMULINE [Concomitant]
     Active Substance: INSULIN HUMAN
     Dosage: 36 IU (INTERNATIONAL UNIT) DAILY;
     Route: 058
  10. DAFALGAN 500 [Concomitant]
     Dosage: 500 MILLIGRAM DAILY;
     Route: 048
  11. EUPRESSYL (URAPIDIL) [Suspect]
     Active Substance: URAPIDIL
     Indication: ESSENTIAL HYPERTENSION
     Dosage: 90 MILLIGRAM DAILY;
     Route: 048
  12. ASPEGIC (ASPIRIN) [Concomitant]
     Active Substance: ASPIRIN
     Dosage: 250 MILLIGRAM DAILY;
     Route: 048
  13. OMEPRAZOLE. [Suspect]
     Active Substance: OMEPRAZOLE
     Dosage: 20 MILLIGRAM DAILY;
     Route: 048
  14. MIRTAZAPINE. [Concomitant]
     Active Substance: MIRTAZAPINE
     Route: 048
     Dates: end: 20070201
  15. HUMALOG [Concomitant]
     Active Substance: INSULIN LISPRO
     Dosage: 16 IU (INTERNATIONAL UNIT) DAILY; DAILY DOSE 16 IU
     Route: 058

REACTIONS (2)
  - Confusional state [Recovering/Resolving]
  - Fall [Recovering/Resolving]

NARRATIVE: CASE EVENT DATE: 20070201
